FAERS Safety Report 7784511-7 (Version None)
Quarter: 2011Q3

REPORT INFORMATION
  Report Type: 
  Country: None (occurrence: None)
  Receive Date: 20110928
  Receipt Date: 20110919
  Transmission Date: 20111222
  Serious: Yes (Other)
  Sender: FDA-Public Use
  Company Number: FR-JNJFOC-20110704264

PATIENT
  Age: 54 Year
  Sex: Female

DRUGS (4)
  1. REMICADE [Suspect]
     Dosage: FROM 14TH DOSE
     Route: 042
  2. REMICADE [Suspect]
     Indication: RHEUMATOID ARTHRITIS
     Dosage: DOSE GIVEN FOR 13 INFUSIONS
     Route: 042
  3. LEFLUNOMIDE [Concomitant]
  4. PREDNISONE [Concomitant]

REACTIONS (2)
  - PSORIASIS [None]
  - PYODERMA GANGRENOSUM [None]
